FAERS Safety Report 12134678 (Version 2)
Quarter: 2016Q2

REPORT INFORMATION
  Report Type: Spontaneous
  Country: SN (occurrence: SN)
  Receive Date: 20160301
  Receipt Date: 20160414
  Transmission Date: 20160815
  Serious: Yes (Other)
  Sender: FDA-Public Use
  Company Number: SN-PFIZER INC-2016125257

PATIENT
  Age: 30 Year
  Sex: Male

DRUGS (3)
  1. XALATAN [Suspect]
     Active Substance: LATANOPROST
     Indication: GLAUCOMA
     Dosage: 1 GTT, 1X/DAY
     Route: 047
     Dates: end: 20160225
  2. XALATAN [Suspect]
     Active Substance: LATANOPROST
     Indication: INJURY
  3. AZOTE [Concomitant]
     Indication: GLAUCOMA
     Dosage: UNK

REACTIONS (3)
  - Eye inflammation [Recovered/Resolved]
  - Drug intolerance [Recovered/Resolved]
  - Ocular hyperaemia [Recovered/Resolved]
